FAERS Safety Report 8502628-6 (Version None)
Quarter: 2012Q3

REPORT INFORMATION
  Report Type: 
  Country: None (occurrence: None)
  Receive Date: 20120711
  Receipt Date: 20120702
  Transmission Date: 20120928
  Serious: Yes (Other)
  Sender: FDA-Public Use
  Company Number: ES-PFIZER INC-2012163832

PATIENT
  Age: 23 Year
  Weight: 57 kg

DRUGS (1)
  1. PANTOPRAZOLE [Suspect]
     Indication: PROPHYLAXIS AGAINST GASTROINTESTINAL ULCER
     Dosage: 40 MG, 1X/DAY
     Route: 048
     Dates: start: 20120601, end: 20120607

REACTIONS (4)
  - DIZZINESS [None]
  - BALANCE DISORDER [None]
  - DIARRHOEA [None]
  - HEADACHE [None]
